FAERS Safety Report 24412143 (Version 1)
Quarter: 2024Q4

REPORT INFORMATION
  Report Type: Spontaneous
  Country: US (occurrence: None)
  Receive Date: 20241007
  Receipt Date: 20241007
  Transmission Date: 20250115
  Serious: Yes (Hospitalization)
  Sender: Public
  Company Number: None

PATIENT
  Age: 22 Year
  Sex: Male
  Weight: 41.5 kg

DRUGS (1)
  1. HYDROXOCOBALAMIN [Suspect]
     Active Substance: HYDROXOCOBALAMIN
     Indication: Vitamin B12 deficiency
     Dosage: OTHER STRENGTH : 1000 UG/ML;?
     Route: 030

REACTIONS (5)
  - Product availability issue [None]
  - Pancytopenia [None]
  - Symptom recurrence [None]
  - Sepsis [None]
  - Therapy interrupted [None]

NARRATIVE: CASE EVENT DATE: 20240916
